FAERS Safety Report 10152241 (Version 1)
Quarter: 2014Q2

REPORT INFORMATION
  Report Type: Report from Study
  Country: CA (occurrence: CA)
  Receive Date: 20140505
  Receipt Date: 20140505
  Transmission Date: 20141212
  Serious: Yes (Other)
  Sender: FDA-Public Use
  Company Number: PHHY2014CA053063

PATIENT
  Sex: Female

DRUGS (3)
  1. ACLASTA [Suspect]
     Indication: OSTEOPOROSIS
     Dosage: UNK
     Route: 042
     Dates: start: 20110831
  2. ACLASTA [Suspect]
     Dosage: UNK
     Route: 042
     Dates: start: 20121026
  3. ACLASTA [Suspect]
     Dosage: UNK
     Route: 042
     Dates: start: 20131021

REACTIONS (2)
  - Tooth infection [Unknown]
  - Tooth fracture [Unknown]
